FAERS Safety Report 6392250-2 (Version None)
Quarter: 2009Q4

REPORT INFORMATION
  Report Type: 
  Country: None (occurrence: None)
  Receive Date: 20091005
  Receipt Date: 20091001
  Transmission Date: 20100525
  Serious: Yes (Death)
  Sender: FDA-Public Use
  Company Number: 2009SP021696

PATIENT
  Age: 52 Year
  Sex: Female
  Weight: 54.7 kg

DRUGS (1)
  1. TEMODAL [Suspect]
     Indication: GLIOBLASTOMA
     Dosage: 125 MG; QD; PO
     Route: 048

REACTIONS (2)
  - DISEASE PROGRESSION [None]
  - GLIOBLASTOMA MULTIFORME [None]
